FAERS Safety Report 8094761-0 (Version None)
Quarter: 2012Q1

REPORT INFORMATION
  Report Type: 
  Country: None (occurrence: None)
  Receive Date: 20120129
  Receipt Date: 20111209
  Transmission Date: 20120608
  Serious: No
  Sender: FDA-Public Use
  Company Number: US-ABBOTT-11P-163-0882314-00

PATIENT
  Age: 38 Year
  Sex: Male

DRUGS (2)
  1. ASACOL [Concomitant]
     Indication: PRODUCT USED FOR UNKNOWN INDICATION
     Dosage: 400 MG : 3 PILLS TWICE PER DAY
  2. HUMIRA [Suspect]
     Indication: CROHN'S DISEASE

REACTIONS (10)
  - URTICARIA [None]
  - ERYTHEMA [None]
  - INJECTION SITE ERYTHEMA [None]
  - INJECTION SITE SWELLING [None]
  - INJECTION SITE PRURITUS [None]
  - ABDOMINAL PAIN UPPER [None]
  - INJECTION SITE PAIN [None]
  - PRURITUS [None]
  - INJECTION SITE URTICARIA [None]
  - INJECTION SITE REACTION [None]
